FAERS Safety Report 4625755-2 (Version None)
Quarter: 2005Q1

REPORT INFORMATION
  Report Type: 
  Country: None (occurrence: None)
  Receive Date: 20050330
  Receipt Date: 20050316
  Transmission Date: 20050727
  Serious: Yes (Life-Threatening, Hospitalization)
  Sender: FDA-Public Use
  Company Number: 8009529

PATIENT
  Age: 34 Year
  Sex: Female

DRUGS (3)
  1. KEPPRA [Suspect]
     Indication: GRAND MAL CONVULSION
     Dosage: 500 MG 2/D PO
     Route: 048
     Dates: start: 20041207, end: 20050316
  2. DEPAKENE [Concomitant]
  3. LUTENYL [Concomitant]

REACTIONS (24)
  - ANTITHROMBIN III DECREASED [None]
  - BLEEDING TIME PROLONGED [None]
  - CONDITION AGGRAVATED [None]
  - CONVULSION [None]
  - CYTOLYTIC HEPATITIS [None]
  - DIARRHOEA [None]
  - DRUG INEFFECTIVE [None]
  - DRUG INTOLERANCE [None]
  - ENDOMETRIOSIS [None]
  - FIBRIN DEGRADATION PRODUCTS INCREASED [None]
  - HEADACHE [None]
  - HEMIPLEGIA [None]
  - LOSS OF CONSCIOUSNESS [None]
  - MOTOR DYSFUNCTION [None]
  - PROTEIN TOTAL DECREASED [None]
  - PROTHROMBIN TIME RATIO DECREASED [None]
  - PYREXIA [None]
  - RENAL FAILURE [None]
  - RHABDOMYOLYSIS [None]
  - SOMNOLENCE [None]
  - THROMBOCYTOPENIA [None]
  - THROMBOPHLEBITIS [None]
  - TROPONIN INCREASED [None]
  - WHITE BLOOD CELL COUNT INCREASED [None]
